FAERS Safety Report 12955328 (Version 1)
Quarter: 2016Q4

REPORT INFORMATION
  Report Type: Spontaneous
  Country: US (occurrence: US)
  Receive Date: 20161118
  Receipt Date: 20161118
  Transmission Date: 20170207
  Serious: Yes (Death, Hospitalization)
  Sender: FDA-Public Use
  Company Number: PHHY2016US155508

PATIENT

DRUGS (2)
  1. PHENCYCLIDINE [Suspect]
     Active Substance: PHENCYCLIDINE
     Indication: DRUG ABUSE
     Route: 065
  2. METHADONE [Suspect]
     Active Substance: METHADONE HYDROCHLORIDE
     Indication: DRUG ABUSE
     Route: 065

REACTIONS (6)
  - Coagulopathy [Unknown]
  - Metabolic acidosis [Unknown]
  - Drug abuse [Unknown]
  - Transaminases increased [Unknown]
  - Acute kidney injury [Unknown]
  - Gastrointestinal necrosis [Fatal]
